FAERS Safety Report 7126254-9 (Version None)
Quarter: 2010Q4

REPORT INFORMATION
  Report Type: 
  Country: None (occurrence: None)
  Receive Date: 20101129
  Receipt Date: 20101122
  Transmission Date: 20110411
  Serious: Yes (Other)
  Sender: FDA-Public Use
  Company Number: IT-BRISTOL-MYERS SQUIBB COMPANY-15407281

PATIENT
  Age: 66 Year
  Sex: Female

DRUGS (7)
  1. COUMADIN [Suspect]
     Indication: CARDIAC VALVE PROSTHESIS USER
     Dosage: INTERRUPTED ON 9NOV10
     Dates: start: 20040402
  2. NOVONORM [Suspect]
     Indication: DIABETES MELLITUS
     Dosage: 0.5MG TABS
     Route: 048
     Dates: start: 20101029, end: 20101109
  3. LOSAPREX [Concomitant]
     Dosage: FORMLN:LOSAPREX 100 MG FILM COATED ORAL TABS
     Route: 048
  4. SOTALOL [Concomitant]
     Dosage: SOTALOL 80 MG ORAL TABS
     Route: 048
  5. PRELECTAL [Concomitant]
     Dosage: PRELECTAL 5 MG+1,25MG FILM COATED ORAL TABS
     Route: 048
  6. LIBRADIN [Concomitant]
     Dosage: LIBRADIN 20 MG MODIFIED RELEASE ORAL TABS
     Route: 048
  7. LIPITOR [Concomitant]
     Dosage: TABS
     Route: 048

REACTIONS (2)
  - DIABETES MELLITUS [None]
  - INTERNATIONAL NORMALISED RATIO INCREASED [None]
